FAERS Safety Report 7132321-6 (Version None)
Quarter: 2010Q4

REPORT INFORMATION
  Report Type: 
  Country: None (occurrence: None)
  Receive Date: 20101130
  Receipt Date: 20101130
  Transmission Date: 20110411
  Serious: Yes (Other)
  Sender: FDA-Public Use
  Company Number: None

PATIENT
  Age: 37 Year
  Sex: Female
  Weight: 68.0396 kg

DRUGS (1)
  1. DARVOCET [Suspect]
     Indication: RIB FRACTURE
     Dosage: 100-650 AS NEEDED PO
     Route: 048
     Dates: start: 20100824, end: 20100910

REACTIONS (1)
  - PALPITATIONS [None]
